FAERS Safety Report 9929412 (Version 2)
Quarter: 2014Q3

REPORT INFORMATION
  Report Type: Spontaneous
  Country: IT (occurrence: IT)
  Receive Date: 20140227
  Receipt Date: 20140702
  Transmission Date: 20150326
  Serious: Yes (Hospitalization)
  Sender: FDA-Public Use
  Company Number: IT-ABBVIE-14P-083-1205864-00

PATIENT
  Age: 74 Year
  Sex: Male

DRUGS (9)
  1. MEDROL [Concomitant]
     Active Substance: METHYLPREDNISOLONE
     Indication: BRAIN NEOPLASM
     Dates: start: 20131217, end: 20131219
  2. ZYLORIC [Concomitant]
     Active Substance: ALLOPURINOL
     Indication: BRAIN NEOPLASM
     Dates: start: 20131126, end: 20131219
  3. FINASTERIDE. [Concomitant]
     Active Substance: FINASTERIDE
     Indication: BRAIN NEOPLASM
     Dates: start: 20131126, end: 20131219
  4. ZOCOR [Concomitant]
     Active Substance: SIMVASTATIN
     Indication: BRAIN NEOPLASM
     Dates: start: 20131126, end: 20131219
  5. DEPAKINE CHRONO [Suspect]
     Active Substance: VALPROATE SODIUM
     Indication: EPILEPSY
     Route: 048
     Dates: start: 20131217, end: 20140103
  6. ANTRA [Concomitant]
     Active Substance: OMEPRAZOLE
     Indication: BRAIN NEOPLASM
     Dates: start: 20131126, end: 20131219
  7. RISPERDAL [Concomitant]
     Active Substance: RISPERIDONE
     Indication: BRAIN NEOPLASM
     Dates: start: 20131126, end: 20131219
  8. SOLDESAM [Concomitant]
     Active Substance: DEXAMETHASONE
     Indication: BRAIN NEOPLASM
     Dates: start: 20131126, end: 20131216
  9. ISOPTIN [Concomitant]
     Active Substance: VERAPAMIL HYDROCHLORIDE
     Indication: BRAIN NEOPLASM
     Dates: start: 20131126, end: 20131219

REACTIONS (2)
  - Haematuria [Recovered/Resolved]
  - Thrombocytopenia [Recovered/Resolved]

NARRATIVE: CASE EVENT DATE: 20131218
